FAERS Safety Report 16320376 (Version 1)
Quarter: 2019Q2

REPORT INFORMATION
  Report Type: Spontaneous
  Country: US (occurrence: US)
  Receive Date: 20190516
  Receipt Date: 20190516
  Transmission Date: 20190711
  Serious: Yes (Other)
  Sender: FDA-Public Use
  Company Number: US-PFIZER INC-2019206430

PATIENT
  Age: 63 Year
  Sex: Male
  Weight: 77.98 kg

DRUGS (7)
  1. IRBESARTAN AND HYDROCHLOROTHIAZIDE [Suspect]
     Active Substance: HYDROCHLOROTHIAZIDE\IRBESARTAN
     Indication: HYPERTENSION
     Dosage: 300 MG, 1X/DAY (IRBESARTAN /HYDROCHLORTHIAZIDE 300/12.5MG)
     Route: 048
     Dates: start: 20180906
  2. ROSUVASTATIN. [Suspect]
     Active Substance: ROSUVASTATIN
     Dosage: UNK
  3. OLMESARTAN [Suspect]
     Active Substance: OLMESARTAN
     Dosage: UNK
  4. METOPROLOL TARTRATE. [Suspect]
     Active Substance: METOPROLOL TARTRATE
     Indication: BLOOD PRESSURE ABNORMAL
     Dosage: UNK
  5. IRBESARTAN. [Suspect]
     Active Substance: IRBESARTAN
     Indication: HYPERTENSION
     Dosage: 300 MG, 1X/DAY
     Route: 048
     Dates: start: 20180906
  6. INSPRA [Suspect]
     Active Substance: EPLERENONE
     Dosage: 50 MG, UNK
     Dates: start: 201902
  7. IRBESARTAN AND HYDROCHLOROTHIAZIDE [Suspect]
     Active Substance: HYDROCHLOROTHIAZIDE\IRBESARTAN
     Dosage: 300 MG, 1X/DAY (IRBESARTAN /HYDROCHLORTHIAZIDE 300/12.5MG)
     Route: 048

REACTIONS (5)
  - Blood potassium decreased [Unknown]
  - Blood pressure fluctuation [Unknown]
  - Drug ineffective [Unknown]
  - Blood testosterone decreased [Unknown]
  - Hypokalaemia [Unknown]

NARRATIVE: CASE EVENT DATE: 20180906
